FAERS Safety Report 5914998-3 (Version None)
Quarter: 2008Q4

REPORT INFORMATION
  Report Type: 
  Country: None (occurrence: None)
  Receive Date: 20081008
  Receipt Date: 20080924
  Transmission Date: 20090506
  Serious: Yes (Hospitalization)
  Sender: FDA-Public Use
  Company Number: US022069

PATIENT
  Age: 43 Year
  Sex: Female
  Weight: 61.2356 kg

DRUGS (34)
  1. ACTIQ [Suspect]
     Indication: ARTHROPATHY
     Dosage: VARIABLE DOSING BUCCAL
     Route: 002
     Dates: start: 20020506, end: 20070130
  2. ACTIQ [Suspect]
     Indication: BACK PAIN
     Dosage: VARIABLE DOSING BUCCAL
     Route: 002
     Dates: start: 20020506, end: 20070130
  3. LORCET-HD [Suspect]
     Indication: BACK PAIN
     Dosage: 10MG HYDROCODONE/ACETAMINOPHEN DOSE PRN
     Dates: start: 19991027
  4. NORCO [Suspect]
     Indication: BACK PAIN
     Dosage: 10MG HYDROCODONE/325MG ACETAMINOPHEN PRN
     Dates: start: 20000105
  5. NORCO [Suspect]
     Indication: BACK PAIN
     Dosage: 20 MG Q4HR
     Dates: end: 20020822
  6. OXYCONTIN [Suspect]
     Indication: BACK PAIN
     Dosage: 140 MG DAILY
     Dates: start: 19991027
  7. OXYCONTIN [Suspect]
     Indication: BACK PAIN
     Dosage: 100 MG DAILY
     Dates: end: 20020822
  8. ROXICET [Suspect]
     Dosage: 5MG OXYCODONE/325 ACETAMINOPHEN
     Dates: start: 20001109
  9. STADOL [Suspect]
     Indication: BACK PAIN
     Dosage: 10MG/ML NASAL
     Route: 045
     Dates: start: 20011109
  10. OXYIR [Suspect]
     Dosage: 10 MG QID
     Dates: start: 20020101, end: 20020101
  11. METHADONE HCL [Suspect]
     Dosage: 10 MG TID
     Dates: start: 20020822, end: 20020903
  12. METHADONE HCL [Suspect]
     Dosage: 20 MG TID
     Dates: start: 20020904, end: 20030609
  13. METHADONE HCL [Suspect]
     Dosage: 10 MG QID
     Dates: start: 20030610, end: 20040907
  14. DURAGESIC-100 [Suspect]
     Indication: BACK PAIN
     Dosage: 75 UG Q1HR TRANSDERMAL
     Route: 062
     Dates: start: 20040907, end: 20050224
  15. DURAGESIC-100 [Suspect]
     Indication: BACK PAIN
     Dosage: 150 UG Q1HR TRANSDERMAL
     Route: 062
     Dates: start: 20050225, end: 20050518
  16. DURAGESIC-100 [Suspect]
     Indication: BACK PAIN
     Dosage: 100 UG Q1HR TRANSDERMAL
     Route: 062
     Dates: start: 20050519, end: 20051108
  17. DURAGESIC-100 [Suspect]
     Indication: BACK PAIN
     Dosage: 75 UG Q1HR TRANSDERMAL
     Route: 062
     Dates: start: 20051109, end: 20060130
  18. DURAGESIC-100 [Suspect]
     Indication: BACK PAIN
     Dosage: 100 UG Q1HR TRANSDERMAL
     Route: 062
     Dates: start: 20060131, end: 20070202
  19. DURAGESIC-100 [Suspect]
     Indication: BACK PAIN
     Dosage: 75 UG Q1HR TRANSDERMAL
     Route: 062
     Dates: start: 20070203, end: 20070501
  20. MORPHINE SULFATE INJ [Suspect]
     Dosage: 15 MG
     Dates: start: 20041210
  21. ENDOCET [Suspect]
     Dosage: 5MG OXYCODONE/325MG ACETAMINOPHEN
     Dates: start: 20060329
  22. VICODIN ES [Suspect]
     Dosage: 7.5MG HYDROCODONE BITARTRATE/750 ACETAMINOPHEN
     Dates: start: 20040507
  23. KADIAN [Suspect]
     Dosage: 100 MG BID
     Dates: start: 20060828, end: 20070130
  24. DILAUDID [Suspect]
     Dosage: 4 MG QID
     Dates: start: 20060213, end: 20060918
  25. DILAUDID [Suspect]
     Dosage: 4 MG TID
     Dates: start: 20060919, end: 20070131
  26. VALIUM [Concomitant]
  27. ZANAFLEX [Concomitant]
  28. DESYREL [Concomitant]
  29. ATIVAN [Concomitant]
  30. ZOLOFT [Concomitant]
  31. NEURONTIN [Concomitant]
  32. SEROQUEL [Concomitant]
  33. TOPAMAX [Concomitant]
  34. WELLBUTRIN XL [Concomitant]

REACTIONS (11)
  - ABNORMAL BEHAVIOUR [None]
  - BACK INJURY [None]
  - DENTAL CARIES [None]
  - DEPRESSION [None]
  - DRUG ABUSE [None]
  - DRUG DEPENDENCE [None]
  - DYSARTHRIA [None]
  - INADEQUATE ANALGESIA [None]
  - MUSCLE DISORDER [None]
  - TOOTH ABSCESS [None]
  - TREATMENT NONCOMPLIANCE [None]
